FAERS Safety Report 19210188 (Version 2)
Quarter: 2021Q2

REPORT INFORMATION
  Report Type: Report from Study
  Country: BR (occurrence: BR)
  Receive Date: 20210504
  Receipt Date: 20210512
  Transmission Date: 20210717
  Serious: Yes (Other)
  Sender: FDA-Public Use
  Company Number: NVSC2020BR049078

PATIENT
  Age: 27 Year
  Sex: Male

DRUGS (9)
  1. COSENTYX [Suspect]
     Active Substance: SECUKINUMAB
     Dosage: UNK
     Route: 065
     Dates: start: 202011
  2. COSENTYX [Suspect]
     Active Substance: SECUKINUMAB
     Dosage: UNK
     Route: 065
     Dates: start: 20210201
  3. COSENTYX [Suspect]
     Active Substance: SECUKINUMAB
     Indication: ANKYLOSING SPONDYLITIS
     Dosage: UNK
     Route: 065
     Dates: start: 201907
  4. COSENTYX [Suspect]
     Active Substance: SECUKINUMAB
     Dosage: 150 MG
     Route: 065
     Dates: start: 201910
  5. COSENTYX [Suspect]
     Active Substance: SECUKINUMAB
     Dosage: UNK
     Route: 065
     Dates: start: 202010
  6. COSENTYX [Suspect]
     Active Substance: SECUKINUMAB
     Indication: PSORIATIC ARTHROPATHY
     Dosage: 300 MG
     Route: 065
     Dates: start: 20190208
  7. COSENTYX [Suspect]
     Active Substance: SECUKINUMAB
     Dosage: 150 MG
     Route: 065
     Dates: start: 201908
  8. COSENTYX [Suspect]
     Active Substance: SECUKINUMAB
     Dosage: UNK
     Route: 065
     Dates: start: 20200110
  9. COSENTYX [Suspect]
     Active Substance: SECUKINUMAB
     Dosage: UNK
     Route: 065
     Dates: start: 20210410

REACTIONS (18)
  - Oral discomfort [Recovering/Resolving]
  - Nausea [Recovered/Resolved]
  - Product dose omission issue [Unknown]
  - Vomiting [Recovering/Resolving]
  - Pallor [Recovering/Resolving]
  - Syncope [Recovering/Resolving]
  - Oesophageal candidiasis [Recovered/Resolved]
  - Psoriasis [Not Recovered/Not Resolved]
  - Injury [Not Recovered/Not Resolved]
  - Oral candidiasis [Recovered/Resolved]
  - Tongue discolouration [Recovering/Resolving]
  - Decreased immune responsiveness [Unknown]
  - Pruritus [Not Recovered/Not Resolved]
  - Wound [Recovering/Resolving]
  - Chills [Recovering/Resolving]
  - Gastrointestinal candidiasis [Recovered/Resolved]
  - Weight decreased [Unknown]
  - Inappropriate schedule of product administration [Unknown]

NARRATIVE: CASE EVENT DATE: 201907
